FAERS Safety Report 14011072 (Version 2)
Quarter: 2017Q4

REPORT INFORMATION
  Report Type: Spontaneous
  Country: US (occurrence: US)
  Receive Date: 20170926
  Receipt Date: 20171011
  Transmission Date: 20180321
  Serious: Yes (Death, Hospitalization, Other)
  Sender: FDA-Public Use
  Company Number: US-STRIDES ARCOLAB LIMITED-2017SP012920

PATIENT

DRUGS (4)
  1. MYCOPHENOLATE MOFETIL. [Suspect]
     Active Substance: MYCOPHENOLATE MOFETIL
     Indication: LIVER TRANSPLANT
     Dosage: UNK
     Route: 065
  2. PREDNISOLONE. [Suspect]
     Active Substance: PREDNISOLONE
     Indication: LIVER TRANSPLANT
     Dosage: UNK
     Route: 065
  3. BASILIXIMAB [Suspect]
     Active Substance: BASILIXIMAB
     Indication: LIVER TRANSPLANT
     Dosage: UNK
     Route: 065
  4. TACROLIMUS. [Suspect]
     Active Substance: TACROLIMUS
     Indication: LIVER TRANSPLANT
     Dosage: UNK
     Route: 065

REACTIONS (15)
  - Mental status changes [Unknown]
  - Abdominal pain [Unknown]
  - Pyrexia [Unknown]
  - Subarachnoid haemorrhage [Unknown]
  - Pancytopenia [Unknown]
  - Fatigue [Unknown]
  - Adrenal haematoma [Unknown]
  - Acute lung injury [Unknown]
  - Hepatic necrosis [Unknown]
  - Haemodynamic instability [Unknown]
  - Necrosis [Unknown]
  - Ascites [Unknown]
  - Choriomeningitis lymphocytic [Unknown]
  - Multiple organ dysfunction syndrome [Fatal]
  - Anaemia [Unknown]
